FAERS Safety Report 7820653-5 (Version None)
Quarter: 2011Q4

REPORT INFORMATION
  Report Type: 
  Country: None (occurrence: None)
  Receive Date: 20111018
  Receipt Date: 20111003
  Transmission Date: 20120403
  Serious: Yes (Hospitalization, Other)
  Sender: FDA-Public Use
  Company Number: JP-WATSON-2011-14878

PATIENT
  Age: 23 Year
  Sex: Male

DRUGS (3)
  1. PREDNISOLONE [Suspect]
     Indication: CROHN'S DISEASE
     Dosage: 50 MG, DAILY
     Route: 065
  2. PREDNISOLONE [Suspect]
     Dosage: 40 MG, DAILY (THEN TAPERED)
     Route: 065
  3. INFLIXIMAB [Suspect]
     Indication: CROHN'S DISEASE
     Dosage: 200 MG/BODY

REACTIONS (2)
  - NOCARDIOSIS [None]
  - LIVER ABSCESS [None]
